FAERS Safety Report 8588873-2 (Version None)
Quarter: 2012Q3

REPORT INFORMATION
  Report Type: 
  Country: None (occurrence: None)
  Receive Date: 20120809
  Receipt Date: 20120802
  Transmission Date: 20120928
  Serious: Yes (Other)
  Sender: FDA-Public Use
  Company Number: GB-ABBOTT-12P-167-0964357-00

PATIENT
  Sex: Male

DRUGS (1)
  1. HUMIRA 40 MG/ 0.8 ML PRE-FILLED SYRINGE [Suspect]
     Indication: PSORIASIS
     Dosage: ON HOLD
     Dates: start: 20100501

REACTIONS (7)
  - TOOTH EXTRACTION [None]
  - EAR PAIN [None]
  - INNER EAR DISORDER [None]
  - DENTAL OPERATION [None]
  - EAR INFECTION [None]
  - TYMPANIC MEMBRANE PERFORATION [None]
  - FUNGAL INFECTION [None]
